FAERS Safety Report 23679876 (Version 2)
Quarter: 2024Q2

REPORT INFORMATION
  Report Type: Spontaneous
  Country: IT (occurrence: IT)
  Receive Date: 20240327
  Receipt Date: 20240422
  Transmission Date: 20240716
  Serious: Yes (Life-Threatening, Other)
  Sender: FDA-Public Use
  Company Number: IT-009507513-2403ITA007090

PATIENT
  Age: 64 Year
  Sex: Male

DRUGS (2)
  1. KEYTRUDA [Suspect]
     Active Substance: PEMBROLIZUMAB
     Indication: Lung squamous cell carcinoma stage IV
     Dosage: 200 MILLIGRAM, Q3W
     Dates: start: 20210621, end: 20211206
  2. KEYTRUDA [Suspect]
     Active Substance: PEMBROLIZUMAB
     Dosage: 200 MILLIGRAM, Q3W
     Dates: start: 20220114, end: 20220321

REACTIONS (1)
  - Dermatomyositis [Recovering/Resolving]
